FAERS Safety Report 11622146 (Version 1)
Quarter: 2015Q4

REPORT INFORMATION
  Report Type: Spontaneous
  Country: US (occurrence: US)
  Receive Date: 20151013
  Receipt Date: 20151013
  Transmission Date: 20160304
  Serious: No
  Sender: FDA-Public Use
  Company Number: US-JNJFOC-20150901437

PATIENT
  Age: 46 Year
  Sex: Female
  Weight: 91.63 kg

DRUGS (13)
  1. WOMENS ROGAINE UNSCENTED [Suspect]
     Active Substance: MINOXIDIL
     Indication: HAIR GROWTH ABNORMAL
     Dosage: APPROXIMATELY 1/2 CAPFUL
     Route: 061
     Dates: end: 20150813
  2. VITAMIN B12 [Concomitant]
     Active Substance: CYANOCOBALAMIN
     Indication: HAIR DISORDER
     Route: 065
  3. BIOTIN [Concomitant]
     Active Substance: BIOTIN
     Indication: SKIN DISORDER
     Dosage: 1 PILL A DAY
     Route: 065
  4. BIOTIN [Concomitant]
     Active Substance: BIOTIN
     Indication: HAIR DISORDER
     Dosage: 1 PILL A DAY
     Route: 065
  5. FOLIC ACID. [Concomitant]
     Active Substance: FOLIC ACID
     Indication: SKIN DISORDER
     Dosage: 1 PILL A DAY
     Route: 065
  6. FOLIC ACID. [Concomitant]
     Active Substance: FOLIC ACID
     Indication: HAIR DISORDER
     Dosage: 1 PILL A DAY
     Route: 065
  7. NATURES BOUNTY HAIR SKIN AND NAILS [Concomitant]
     Indication: NAIL DISORDER
     Dosage: 1 PILL A DAY
     Route: 065
  8. NATURES BOUNTY HAIR SKIN AND NAILS [Concomitant]
     Indication: HAIR DISORDER
     Dosage: 1 PILL A DAY
     Route: 065
  9. WOMENS ROGAINE UNSCENTED [Suspect]
     Active Substance: MINOXIDIL
     Route: 061
  10. NATURES BOUNTY HAIR SKIN AND NAILS [Concomitant]
     Indication: SKIN DISORDER
     Dosage: 1 PILL A DAY
     Route: 065
  11. VITAMIN D [Concomitant]
     Active Substance: CHOLECALCIFEROL
     Indication: HAIR DISORDER
     Dosage: 1 PILL A DAY
     Route: 065
  12. VITAMIN B12 [Concomitant]
     Active Substance: CYANOCOBALAMIN
     Indication: SKIN DISORDER
     Route: 065
  13. VITAMIN D [Concomitant]
     Active Substance: CHOLECALCIFEROL
     Indication: SKIN DISORDER
     Dosage: 1 PILL A DAY
     Route: 065

REACTIONS (4)
  - Therapeutic response unexpected [Unknown]
  - Alopecia [Not Recovered/Not Resolved]
  - Drug administered at inappropriate site [Unknown]
  - Product use issue [Unknown]
